FAERS Safety Report 20380357 (Version 1)
Quarter: 2022Q1

REPORT INFORMATION
  Report Type: Spontaneous
  Country: US (occurrence: None)
  Receive Date: 20220127
  Receipt Date: 20220127
  Transmission Date: 20220423
  Serious: No
  Sender: FDA-Public Use
  Company Number: 2022A032918

PATIENT
  Sex: Female
  Weight: 122 kg

DRUGS (1)
  1. BYDUREON BCISE [Suspect]
     Active Substance: EXENATIDE
     Indication: Diabetes mellitus
     Route: 065
     Dates: start: 202112

REACTIONS (4)
  - Blood glucose increased [Not Recovered/Not Resolved]
  - Device ineffective [Not Recovered/Not Resolved]
  - Wrong technique in device usage process [Unknown]
  - Device leakage [Unknown]
